FAERS Safety Report 5016099-8 (Version None)
Quarter: 2006Q2

REPORT INFORMATION
  Report Type: 
  Country: None (occurrence: None)
  Receive Date: 20060414
  Receipt Date: 20060306
  Transmission Date: 20061013
  Serious: No
  Sender: FDA-Public Use
  Company Number: 2006SP001088

PATIENT
  Age: 89 Year
  Sex: Male
  Weight: 62.1428 kg

DRUGS (12)
  1. LUNESTA [Suspect]
     Indication: INSOMNIA
     Dosage: 2 MG;HS;ORAL
     Route: 048
     Dates: start: 20060201, end: 20060201
  2. DIGOXIN [Concomitant]
  3. PROSCAR [Concomitant]
  4. LASIX [Concomitant]
  5. POTASSIUM CHLORIDE [Concomitant]
  6. NEXIUM [Concomitant]
  7. ZAROXOLYN [Concomitant]
  8. FOLIC ACID [Concomitant]
  9. TYLENOL (CAPLET) [Concomitant]
  10. CAPTOPRIL [Concomitant]
  11. COREG [Concomitant]
  12. GLUCOSAMINE [Concomitant]

REACTIONS (1)
  - DYSPEPSIA [None]
